FAERS Safety Report 11930045 (Version 1)
Quarter: 2016Q1

REPORT INFORMATION
  Report Type: Spontaneous
  Country: US (occurrence: None)
  Receive Date: 20160119
  Receipt Date: 20160119
  Transmission Date: 20160526
  Serious: Yes (Other)
  Sender: FDA-Public Use
  Company Number: None

PATIENT
  Age: 8 Year
  Sex: Female
  Weight: 32 kg

DRUGS (2)
  1. REGULAR INSULIN/NS 100ML 1 UNIT/ML COMPOUNDED UH PHARMACY [Suspect]
     Active Substance: INSULIN HUMAN
     Indication: BLOOD GLUCOSE INCREASED
     Dosage: 0.1 UNITS/KG PER HOUR INTRAVENOUS
     Dates: start: 20151130, end: 20151203
  2. REGULAR INSULIN/NS 100ML 1 UNIT/ML COMPOUNDED UH PHARMACY [Suspect]
     Active Substance: INSULIN HUMAN
     Indication: DIABETIC KETOACIDOSIS
     Dosage: 0.1 UNITS/KG PER HOUR INTRAVENOUS
     Dates: start: 20151130, end: 20151203

REACTIONS (1)
  - Product measured potency issue [None]

NARRATIVE: CASE EVENT DATE: 20151130
